FAERS Safety Report 16271527 (Version 1)
Quarter: 2019Q2

REPORT INFORMATION
  Report Type: Spontaneous
  Country: FR (occurrence: FR)
  Receive Date: 20190506
  Receipt Date: 20190506
  Transmission Date: 20190711
  Serious: Yes (Hospitalization)
  Sender: FDA-Public Use
  Company Number: FR-PROVELL PHARMACEUTICALS-2066634

PATIENT
  Sex: Female

DRUGS (4)
  1. EUTHYROX [Suspect]
     Active Substance: LEVOTHYROXINE SODIUM
     Indication: PRODUCT USED FOR UNKNOWN INDICATION
  2. OVALEAP [Suspect]
     Active Substance: FOLLITROPIN
  3. GANIRELIX ACETATE. [Suspect]
     Active Substance: GANIRELIX ACETATE
  4. OVITRELLE [Suspect]
     Active Substance: CHORIOGONADOTROPIN ALFA

REACTIONS (1)
  - Ovarian hyperstimulation syndrome [None]
